FAERS Safety Report 14474728 (Version 2)
Quarter: 2018Q1

REPORT INFORMATION
  Report Type: Spontaneous
  Country: JP (occurrence: JP)
  Receive Date: 20180201
  Receipt Date: 20180213
  Transmission Date: 20180509
  Serious: Yes (Death)
  Sender: FDA-Public Use
  Company Number: JP-BAYER-2018-015240

PATIENT
  Age: 82 Year
  Sex: Male

DRUGS (1)
  1. XOFIGO [Suspect]
     Active Substance: RADIUM RA-223 DICHLORIDE
     Indication: HORMONE-REFRACTORY PROSTATE CANCER
     Dosage: DAILY DOSE 1 DF
     Route: 042
     Dates: start: 20171124, end: 20180119

REACTIONS (3)
  - Asthenia [Fatal]
  - Influenza [Fatal]
  - Aspiration [Fatal]

NARRATIVE: CASE EVENT DATE: 20180120
